FAERS Safety Report 5598883-5 (Version None)
Quarter: 2008Q1

REPORT INFORMATION
  Report Type: 
  Country: None (occurrence: None)
  Receive Date: 20080122
  Receipt Date: 20080116
  Transmission Date: 20080703
  Serious: Yes (Hospitalization)
  Sender: FDA-Public Use
  Company Number: IT-RANBAXY-2008RR-12647

PATIENT

DRUGS (4)
  1. ENALAPRIL RPG 20MG COMPRIME SECABLE [Suspect]
     Indication: HYPERTENSION
     Dosage: 20 MG, QD
  2. TACROLIMUS [Suspect]
     Indication: IMMUNOSUPPRESSION
  3. CYCLOSPORINE [Concomitant]
  4. NIFEDIPINE [Concomitant]
     Dosage: 30 MG, QD

REACTIONS (2)
  - DRUG INTERACTION [None]
  - RENAL FAILURE [None]
